FAERS Safety Report 24586949 (Version 2)
Quarter: 2025Q3

REPORT INFORMATION
  Report Type: Report from Study
  Country: TR (occurrence: TR)
  Receive Date: 20241107
  Receipt Date: 20250711
  Transmission Date: 20251020
  Serious: No
  Sender: SANDOZ
  Company Number: TR-SANDOZ-SDZ2024TR092842

PATIENT
  Age: 6 Year
  Sex: Female
  Weight: 15 kg

DRUGS (2)
  1. OMNITROPE [Suspect]
     Active Substance: SOMATROPIN
     Indication: Growth hormone deficiency
     Route: 058
     Dates: start: 20241014
  2. OMNITROPE [Suspect]
     Active Substance: SOMATROPIN
     Indication: Growth hormone deficiency
     Route: 058
     Dates: start: 20241014

REACTIONS (2)
  - Drug dose omission by device [Unknown]
  - Device mechanical issue [Unknown]

NARRATIVE: CASE EVENT DATE: 20241104
